FAERS Safety Report 19207639 (Version 1)
Quarter: 2021Q2

REPORT INFORMATION
  Report Type: Spontaneous
  Country: US (occurrence: US)
  Receive Date: 20210503
  Receipt Date: 20210503
  Transmission Date: 20210717
  Serious: No
  Sender: FDA-Public Use
  Company Number: US-RVL_PHARMACEUTICALS-USA-POI0573202100113

PATIENT
  Age: 88 Year
  Sex: Female

DRUGS (3)
  1. UPNEEQ [Suspect]
     Active Substance: OXYMETAZOLINE HYDROCHLORIDE
     Indication: EYELID PTOSIS
     Dosage: OU
     Route: 047
     Dates: start: 20210318, end: 20210318
  2. ZIOPTAN [Concomitant]
     Active Substance: TAFLUPROST
     Indication: PRODUCT USED FOR UNKNOWN INDICATION
  3. MOXIFLOXACIN. [Concomitant]
     Active Substance: MOXIFLOXACIN
     Indication: PRODUCT USED FOR UNKNOWN INDICATION

REACTIONS (3)
  - Limb discomfort [Recovered/Resolved]
  - Muscular weakness [Recovered/Resolved]
  - Gait disturbance [Recovered/Resolved]

NARRATIVE: CASE EVENT DATE: 20210318
